FAERS Safety Report 6273882-9 (Version None)
Quarter: 2009Q3

REPORT INFORMATION
  Report Type: 
  Country: None (occurrence: None)
  Receive Date: 20090716
  Receipt Date: 20090709
  Transmission Date: 20100115
  Serious: Yes (Life-Threatening, Hospitalization, Disabling, Other)
  Sender: FDA-Public Use
  Company Number: 2008AG2564

PATIENT
  Age: 64 Year
  Sex: Male

DRUGS (2)
  1. SIMVASTATIN [Suspect]
     Indication: ARTERIOSCLEROSIS
     Dosage: 40 MG
     Dates: start: 20061101, end: 20080114
  2. ACETYLSALICYLIC ACID SRT [Concomitant]

REACTIONS (1)
  - POLYNEUROPATHY [None]
